FAERS Safety Report 25919582 (Version 1)
Quarter: 2025Q4

REPORT INFORMATION
  Report Type: Report from Study
  Country: US (occurrence: None)
  Receive Date: 20251014
  Receipt Date: 20251014
  Transmission Date: 20260117
  Serious: Yes (Hospitalization, Other)
  Sender: UCB
  Company Number: US-UCBSA-2025063995

PATIENT
  Age: 64 Year

DRUGS (3)
  1. LACOSAMIDE [Suspect]
     Active Substance: LACOSAMIDE
     Indication: Epilepsy
     Dosage: 200 MILLIGRAM, 2X/DAY (BID)
  2. LACOSAMIDE [Suspect]
     Active Substance: LACOSAMIDE
     Dosage: 500MG- TAKE THREE AND ONE-HALF TABLETS
  3. KEPPRA [Suspect]
     Active Substance: LEVETIRACETAM
     Indication: Epilepsy
     Dosage: 1750 MILLIGRAM, 2X/DAY (BID) (500MG- TAKE THREE AND ONE-HALF TABLETS)

REACTIONS (1)
  - Generalised tonic-clonic seizure [Not Recovered/Not Resolved]
